FAERS Safety Report 4679332-8 (Version None)
Quarter: 2005Q2

REPORT INFORMATION
  Report Type: 
  Country: None (occurrence: None)
  Receive Date: 20050602
  Receipt Date: 20050511
  Transmission Date: 20051028
  Serious: Yes (Hospitalization)
  Sender: FDA-Public Use
  Company Number: US-JNJFOC-20050503452

PATIENT
  Sex: Male
  Weight: 83.46 kg

DRUGS (10)
  1. FENTANYL [Suspect]
     Route: 062
  2. XANAX [Concomitant]
     Indication: ANXIETY
     Route: 049
  3. ATENOLOL [Concomitant]
     Route: 049
  4. TRAZADONE [Concomitant]
     Indication: DEPRESSION
     Route: 049
  5. TRAZADONE [Concomitant]
     Indication: INSOMNIA
     Route: 049
  6. MELLARIL [Concomitant]
     Indication: ANXIETY
     Route: 049
  7. KLONOPIN [Concomitant]
     Indication: PANIC DISORDER
     Route: 049
  8. NEXIUM [Concomitant]
     Indication: ULCER
     Route: 049
  9. PANCREASE [Concomitant]
     Indication: PANCREATITIS
     Route: 049
  10. PHENEGRAN [Concomitant]
     Indication: NAUSEA
     Dosage: 4-5 TABLETS/DAILY
     Route: 049

REACTIONS (10)
  - ANXIETY [None]
  - CHEST PAIN [None]
  - DIARRHOEA [None]
  - DRUG INEFFECTIVE [None]
  - DRY MOUTH [None]
  - EYE IRRITATION [None]
  - INADEQUATE ANALGESIA [None]
  - NASAL DRYNESS [None]
  - PANCREATITIS [None]
  - VOMITING [None]
